FAERS Safety Report 10998600 (Version 2)
Quarter: 2015Q2

REPORT INFORMATION
  Report Type: Spontaneous
  Country: GB (occurrence: GB)
  Receive Date: 20150406
  Receipt Date: 20150527
  Transmission Date: 20150821
  Serious: Yes (Death, Hospitalization, Other)
  Sender: FDA-Public Use
  Company Number: 2805411

PATIENT
  Age: 69 Year
  Sex: Male
  Weight: 72 kg

DRUGS (4)
  1. AVASTIN [Suspect]
     Active Substance: BEVACIZUMAB
     Indication: ADENOCARCINOMA GASTRIC
     Dosage: LAST DOSE PRIOR TO ABDOMINAL PAIN:02/NOV/2009.LAST DOSE PRIOR TO SAE:11 JUN 2010
     Route: 042
     Dates: start: 20090911
  2. EPIRUBICIN HYDROCHLORIDE. [Suspect]
     Active Substance: EPIRUBICIN HYDROCHLORIDE
     Indication: ADENOCARCINOMA GASTRIC
     Dosage: LAST DOSE ON 02-NOV-2009
     Route: 042
     Dates: start: 20090911
  3. XELODA [Suspect]
     Active Substance: CAPECITABINE
     Indication: ADENOCARCINOMA GASTRIC
     Dosage: ACTUAL DOSE 2.5;DOSE:52500;DOSE:35000.LAST DOSE PRIOR TO SAE:02 NOV 2009
     Route: 048
     Dates: start: 20090911
  4. CISPLATIN. [Suspect]
     Active Substance: CISPLATIN
     Indication: ADENOCARCINOMA GASTRIC
     Dosage: LAST DOSE ON 02-NOV-2009
     Route: 042
     Dates: start: 20090911

REACTIONS (6)
  - Retching [Unknown]
  - Abdominal pain [Fatal]
  - Abdominal pain [Recovered/Resolved]
  - Abdominal pain [Recovered/Resolved]
  - Nausea [Unknown]
  - Abdominal adhesions [Unknown]

NARRATIVE: CASE EVENT DATE: 20100316
